FAERS Safety Report 20861929 (Version 1)
Quarter: 2022Q2

REPORT INFORMATION
  Report Type: Spontaneous
  Country: JP (occurrence: JP)
  Receive Date: 20220523
  Receipt Date: 20220523
  Transmission Date: 20220720
  Serious: Yes (Hospitalization, Other)
  Sender: FDA-Public Use
  Company Number: JP-GLAXOSMITHKLINE-JP2022JPN080161

PATIENT

DRUGS (8)
  1. MEPOLIZUMAB [Suspect]
     Active Substance: MEPOLIZUMAB
     Indication: Asthma
     Dosage: UNK
  2. PREDNISOLONE [Concomitant]
     Active Substance: PREDNISOLONE
     Indication: Autoimmune pancreatitis
     Dosage: 5 MG, 1D
  3. KIPRES OD TABLETS [Concomitant]
     Dosage: 10 MG, QD, BEFORE BEDTIME
  4. TANDOSPIRONE CITRATE TABLETS [Concomitant]
     Dosage: 10 MG, QD, BEFORE BEDTIME
  5. EPINASTINE HYDROCHLORIDE TABLETS [Concomitant]
     Dosage: 20 MG, QD, AFTER THE DINNER
  6. FLUTICASONE PROPIONATE\FORMOTEROL FUMARATE [Concomitant]
     Active Substance: FLUTICASONE PROPIONATE\FORMOTEROL FUMARATE
     Dosage: 2 DF, BID
     Route: 055
  7. GLYCOPYRROLATE [Concomitant]
     Active Substance: GLYCOPYRROLATE
     Dosage: 50 ?G, QD
     Route: 055
  8. BENRALIZUMAB [Concomitant]
     Active Substance: BENRALIZUMAB

REACTIONS (3)
  - Cardiac failure [Recovered/Resolved]
  - Acute respiratory failure [Recovered/Resolved]
  - Asthma [Recovered/Resolved]
